FAERS Safety Report 19451119 (Version 1)
Quarter: 2021Q2

REPORT INFORMATION
  Report Type: Report from Study
  Country: PT (occurrence: PT)
  Receive Date: 20210623
  Receipt Date: 20210623
  Transmission Date: 20210717
  Serious: Yes (Other)
  Sender: FDA-Public Use
  Company Number: PT-ASTRAZENECA-2021A530079

PATIENT

DRUGS (1)
  1. DURVALLUMAB [Suspect]
     Active Substance: DURVALUMAB
     Route: 042

REACTIONS (5)
  - Hyperthyroidism [Unknown]
  - Respiratory failure [Unknown]
  - Abnormal labour [Unknown]
  - Toxicity to various agents [Unknown]
  - Pneumonitis [Unknown]
